FAERS Safety Report 13416310 (Version 1)
Quarter: 2017Q2

REPORT INFORMATION
  Report Type: Spontaneous
  Country: US (occurrence: US)
  Receive Date: 20170407
  Receipt Date: 20170407
  Transmission Date: 20170830
  Serious: No
  Sender: FDA-Public Use
  Company Number: US-ELI_LILLY_AND_COMPANY-US201608004395

PATIENT
  Sex: Female

DRUGS (5)
  1. CYMBALTA [Suspect]
     Active Substance: DULOXETINE HYDROCHLORIDE
     Dosage: 60 MG, QD
     Route: 048
     Dates: start: 20140730, end: 201504
  2. CYMBALTA [Suspect]
     Active Substance: DULOXETINE HYDROCHLORIDE
     Indication: PRODUCT USED FOR UNKNOWN INDICATION
     Dosage: 120 MG, QD
     Route: 048
     Dates: end: 20140702
  3. CYMBALTA [Suspect]
     Active Substance: DULOXETINE HYDROCHLORIDE
     Dosage: 90 MG, QD
     Route: 048
     Dates: start: 20140702, end: 20140730
  4. CYMBALTA [Suspect]
     Active Substance: DULOXETINE HYDROCHLORIDE
     Dosage: 20 MG, QD
     Route: 048
     Dates: start: 20150730
  5. CYMBALTA [Suspect]
     Active Substance: DULOXETINE HYDROCHLORIDE
     Dosage: 30 MG, QD
     Route: 048
     Dates: start: 20150521, end: 20150730

REACTIONS (20)
  - Fibromyalgia [Not Recovered/Not Resolved]
  - Headache [Unknown]
  - Affect lability [Unknown]
  - Anxiety [Unknown]
  - Dysphoria [Unknown]
  - Nausea [Unknown]
  - Insomnia [Unknown]
  - Nightmare [Unknown]
  - Vomiting [Not Recovered/Not Resolved]
  - Lethargy [Unknown]
  - Agitation [Unknown]
  - Panic attack [Not Recovered/Not Resolved]
  - Drug withdrawal syndrome [Unknown]
  - Intentional product misuse [Unknown]
  - Sensory disturbance [Unknown]
  - Abdominal pain upper [Unknown]
  - Libido decreased [Not Recovered/Not Resolved]
  - Fatigue [Unknown]
  - Irritability [Unknown]
  - Paraesthesia [Unknown]
